FAERS Safety Report 4782349-6 (Version None)
Quarter: 2005Q3

REPORT INFORMATION
  Report Type: 
  Country: None (occurrence: None)
  Receive Date: 20050914
  Receipt Date: 20050509
  Transmission Date: 20060218
  Serious: Yes (Death, Other)
  Sender: FDA-Public Use
  Company Number: 163-20785-05050167

PATIENT
  Age: 45 Year
  Sex: Male

DRUGS (15)
  1. THALOMID [Suspect]
     Indication: METASTATIC MALIGNANT MELANOMA
     Dosage: 100 MG, QHS, ORAL
     Route: 048
     Dates: start: 20050207, end: 20050228
  2. MYCELEX (CLOTRIMAZOLE) (TABLETS) [Concomitant]
  3. CEPHULAC (LACTULOSE) [Concomitant]
  4. TEMODAR [Concomitant]
  5. COUMADIN [Concomitant]
  6. COLACE (DOCUSATE SODIUM) (UNKNOWN) [Concomitant]
  7. PREVACID [Concomitant]
  8. MS CONTIN [Concomitant]
  9. REMERON [Concomitant]
  10. HALDOL [Concomitant]
  11. DECADRON [Concomitant]
  12. SENOKOT (SENNA FRUIT) (TABLETS) [Concomitant]
  13. PROCRIT [Concomitant]
  14. ROBAXIN [Concomitant]
  15. PERCOCET [Concomitant]

REACTIONS (9)
  - BLOOD ALKALINE PHOSPHATASE INCREASED [None]
  - BLOOD LACTATE DEHYDROGENASE INCREASED [None]
  - DISEASE PROGRESSION [None]
  - ECCHYMOSIS [None]
  - FALL [None]
  - HAEMATOCRIT DECREASED [None]
  - LABORATORY TEST ABNORMAL [None]
  - THROMBOCYTOPENIA [None]
  - WHITE BLOOD CELL COUNT INCREASED [None]
